FAERS Safety Report 17356097 (Version 3)
Quarter: 2020Q2

REPORT INFORMATION
  Report Type: Spontaneous
  Country: US (occurrence: US)
  Receive Date: 20200131
  Receipt Date: 20200504
  Transmission Date: 20200713
  Serious: Yes (Congenital Anomaly)
  Sender: FDA-Public Use
  Company Number: US-BIOGEN-2020BI00833256

PATIENT

DRUGS (2)
  1. TYSABRI [Suspect]
     Active Substance: NATALIZUMAB
     Indication: MATERNAL EXPOSURE TIMING UNSPECIFIED
     Route: 064
     Dates: start: 20120818, end: 20190815
  2. TYSABRI [Suspect]
     Active Substance: NATALIZUMAB
     Route: 064
     Dates: start: 20200123

REACTIONS (4)
  - Heart disease congenital [Not Recovered/Not Resolved]
  - Trisomy 18 [Not Recovered/Not Resolved]
  - Gastroschisis [Not Recovered/Not Resolved]
  - Foetal exposure during pregnancy [Not Recovered/Not Resolved]
